FAERS Safety Report 15170836 (Version 1)
Quarter: 2018Q3

REPORT INFORMATION
  Report Type: Report from Study
  Country: None (occurrence: IE)
  Receive Date: 20180720
  Receipt Date: 20180720
  Transmission Date: 20181010
  Serious: Yes (Other)
  Sender: FDA-Public Use
  Company Number: IE-ABBVIE-18K-229-2422029-00

PATIENT
  Sex: Female

DRUGS (2)
  1. HUMIRA [Suspect]
     Active Substance: ADALIMUMAB
     Indication: PRODUCT USED FOR UNKNOWN INDICATION
     Route: 058
     Dates: start: 2009, end: 2012
  2. HYDROCORTISONE. [Concomitant]
     Active Substance: HYDROCORTISONE
     Indication: PRODUCT USED FOR UNKNOWN INDICATION
     Dosage: DAILY

REACTIONS (12)
  - Pelvic fracture [Unknown]
  - Obstruction [Unknown]
  - Bile acid malabsorption [Unknown]
  - Crohn^s disease [Unknown]
  - Post procedural inflammation [Unknown]
  - Addison^s disease [Unknown]
  - Renal tubular acidosis [Unknown]
  - Ileectomy [Unknown]
  - Adverse event [Unknown]
  - Colectomy [Unknown]
  - Vitamin D decreased [Unknown]
  - Pituitary tumour benign [Unknown]
